FAERS Safety Report 8330598-2 (Version None)
Quarter: 2012Q2

REPORT INFORMATION
  Report Type: 
  Country: None (occurrence: None)
  Receive Date: 20120502
  Receipt Date: 20120405
  Transmission Date: 20120825
  Serious: No
  Sender: FDA-Public Use
  Company Number: US-AMGEN-USASP2012021804

PATIENT
  Sex: Female

DRUGS (11)
  1. VITAMIN B-12 [Concomitant]
     Dosage: UNK
  2. FOLIC ACID [Concomitant]
     Dosage: UNK
  3. B-COMPLEX                          /00003501/ [Concomitant]
     Dosage: UNK
  4. GABAPENTIN [Concomitant]
     Dosage: UNK
  5. HYDROXYCHLOROQUINE SULFATE [Concomitant]
     Dosage: UNK
  6. TYLENOL (CAPLET) [Concomitant]
     Dosage: UNK
  7. TRAMADOL HCL [Concomitant]
     Dosage: UNK
  8. LEFLUNOMIDE [Concomitant]
     Dosage: UNK
  9. LISINOPRIL [Concomitant]
     Dosage: UNK
  10. CALCIUM [Concomitant]
     Dosage: UNK
  11. ENBREL [Suspect]
     Indication: RHEUMATOID ARTHRITIS
     Dosage: 50 MG, QWK
     Dates: start: 20110901

REACTIONS (2)
  - CATARACT [None]
  - ARTHRALGIA [None]
